FAERS Safety Report 15802446 (Version 1)
Quarter: 2019Q1

REPORT INFORMATION
  Report Type: Spontaneous
  Country: US (occurrence: US)
  Receive Date: 20190107
  Receipt Date: 20190107
  Transmission Date: 20190417
  Serious: No
  Sender: FDA-Public Use
  Company Number: None

PATIENT

DRUGS (2)
  1. PREDNISOLONE ACETATE PREDNISOLONE ACETAT E [Suspect]
     Active Substance: PREDNISOLONE ACETATE
     Route: 047
  2. FLUOROMETHHOLONE FLUOROMETHHOLONE [Suspect]
     Active Substance: FLUOROMETHOLONE
     Route: 047

REACTIONS (2)
  - Product packaging confusion [None]
  - Product storage error [None]
